FAERS Safety Report 8805862 (Version 2)
Quarter: 2012Q4

REPORT INFORMATION
  Report Type: 
  Country: NL (occurrence: NL)
  Receive Date: 20120925
  Receipt Date: 20121116
  Transmission Date: 20130627
  Serious: Yes (Disabling, Other)
  Sender: FDA-Public Use
  Company Number: NL-AMGEN-NLDSP2012060155

PATIENT
  Age: 64 Year
  Sex: Female

DRUGS (1)
  1. ENBREL [Suspect]
     Indication: PSORIASIS
     Dosage: 50 mg, weekly
     Dates: start: 20101105, end: 201201

REACTIONS (3)
  - Diabetes mellitus [Recovering/Resolving]
  - Gait disturbance [Recovering/Resolving]
  - Dehydration [Recovering/Resolving]
